FAERS Safety Report 7765262-1 (Version None)
Quarter: 2011Q3

REPORT INFORMATION
  Report Type: 
  Country: None (occurrence: None)
  Receive Date: 20110921
  Receipt Date: 20110916
  Transmission Date: 20111222
  Serious: Yes (Hospitalization)
  Sender: FDA-Public Use
  Company Number: GB-GLAXOSMITHKLINE-B0747808A

PATIENT
  Age: 10 Year
  Sex: Female
  Weight: 29 kg

DRUGS (11)
  1. VECURONIUM BROMIDE [Concomitant]
  2. CEFOTAXIME [Concomitant]
  3. IBUPROFEN [Concomitant]
  4. DICLOFENAC SODIUM [Concomitant]
  5. THIOPENTAL SODIUM [Concomitant]
  6. SUXAMETHONIUM [Concomitant]
  7. ALBUTEROL [Concomitant]
  8. ONDANSETRON [Suspect]
     Indication: PROCEDURAL NAUSEA
     Route: 042
     Dates: start: 20110907, end: 20110907
  9. ACETAMINOPHEN [Concomitant]
  10. MORPHINE [Concomitant]
  11. METRONIDAZOLE [Concomitant]

REACTIONS (7)
  - VISUAL IMPAIRMENT [None]
  - CYANOSIS [None]
  - BLOOD GLUCOSE DECREASED [None]
  - LOSS OF CONSCIOUSNESS [None]
  - CHEST DISCOMFORT [None]
  - SYNCOPE [None]
  - MALAISE [None]
